FAERS Safety Report 23747010 (Version 2)
Quarter: 2024Q4

REPORT INFORMATION
  Report Type: Spontaneous
  Country: US (occurrence: US)
  Receive Date: 20240416
  Receipt Date: 20241026
  Transmission Date: 20250115
  Serious: No
  Sender: UNITED THERAPEUTICS
  Company Number: US-UNITED THERAPEUTICS-UNT-2024-007830

PATIENT
  Age: 70 Year
  Sex: Male
  Weight: 70.295 kg

DRUGS (12)
  1. REMODULIN [Suspect]
     Active Substance: TREPROSTINIL
     Indication: Pulmonary arterial hypertension
     Dosage: 0.048 ?G/KG (SELF FILLED WITH 3 ML PER CASSETTE AT THE RATE OF 31 MCL PER HOUR), CONTINUING
  2. REMODULIN [Suspect]
     Active Substance: TREPROSTINIL
     Dosage: 0.050 ?G/KG (SELF FILLED WITH 3 ML PER CASSETTE AT THE RATE OF 43 MCL PER HOUR), CONTINUING
  3. REMODULIN [Suspect]
     Active Substance: TREPROSTINIL
     Dosage: UNK, CONTINUING
  4. MYCOPHENOLATE MOFETIL [Concomitant]
     Active Substance: MYCOPHENOLATE MOFETIL
     Indication: Product used for unknown indication
  5. SODIUM CHLORIDE [Concomitant]
     Active Substance: SODIUM CHLORIDE
     Indication: Product used for unknown indication
  6. OPSUMIT [Concomitant]
     Active Substance: MACITENTAN
     Indication: Product used for unknown indication
  7. TADALAFIL [Concomitant]
     Active Substance: TADALAFIL
     Indication: Product used for unknown indication
  8. DICLOFENAC SODIUM [Concomitant]
     Active Substance: DICLOFENAC SODIUM
     Indication: Product used for unknown indication
  9. OXYGEN [Concomitant]
     Active Substance: OXYGEN
     Indication: Product used for unknown indication
  10. OMEPRAZOLE [Concomitant]
     Active Substance: OMEPRAZOLE
     Indication: Product used for unknown indication
  11. MINOCYCLINE HYDROCHLORIDE [Concomitant]
     Active Substance: MINOCYCLINE HYDROCHLORIDE
     Indication: Product used for unknown indication
  12. TYLENOL [Concomitant]
     Active Substance: ACETAMINOPHEN
     Indication: Product used for unknown indication

REACTIONS (16)
  - Limb discomfort [Unknown]
  - Peripheral swelling [Unknown]
  - Pain in extremity [Unknown]
  - Paraesthesia [Unknown]
  - Device power source issue [Unknown]
  - Device power source issue [Unknown]
  - Device issue [Unknown]
  - Device power source issue [Unknown]
  - Device power source issue [Unknown]
  - Device alarm issue [Unknown]
  - Device wireless communication issue [Unknown]
  - Device physical property issue [Unknown]
  - Device leakage [Unknown]
  - Device physical property issue [Unknown]
  - Device temperature issue [Unknown]
  - Device issue [Unknown]

NARRATIVE: CASE EVENT DATE: 20240313
